FAERS Safety Report 6973715-9 (Version None)
Quarter: 2010Q3

REPORT INFORMATION
  Report Type: 
  Country: None (occurrence: None)
  Receive Date: 20100907
  Receipt Date: 20100826
  Transmission Date: 20110219
  Serious: Yes (Hospitalization)
  Sender: FDA-Public Use
  Company Number: 017848

PATIENT
  Sex: Male

DRUGS (10)
  1. CERTOLIZUMAB PEGOL (CDP870) [Suspect]
     Indication: RHEUMATOID ARTHRITIS
     Dosage: SEE IMAGE
     Route: 058
     Dates: start: 20050815, end: 20060731
  2. CERTOLIZUMAB PEGOL (CDP870) [Suspect]
     Indication: RHEUMATOID ARTHRITIS
     Dosage: SEE IMAGE
     Route: 058
     Dates: start: 20060814
  3. METHOTREXATE [Concomitant]
  4. FOLIC ACID [Concomitant]
  5. ATENOLOL [Concomitant]
  6. RENITEN /00574902/ [Concomitant]
  7. AMLODIPINE BESYLATE [Concomitant]
  8. SIMVASTATIN [Concomitant]
  9. OMEPRAZOLE [Concomitant]
  10. CALCIUM [Concomitant]

REACTIONS (4)
  - ANORECTAL INFECTION [None]
  - ARTHRITIS INFECTIVE [None]
  - BRONCHITIS [None]
  - OSTEOPOROSIS [None]
